FAERS Safety Report 15880643 (Version 1)
Quarter: 2019Q1

REPORT INFORMATION
  Report Type: Spontaneous
  Country: US (occurrence: US)
  Receive Date: 20190104
  Receipt Date: 20190104
  Transmission Date: 20190417
  Serious: Yes (Other)
  Sender: FDA-Public Use
  Company Number: None

PATIENT
  Age: 53 Year
  Sex: Male
  Weight: 92 kg

DRUGS (1)
  1. BICTEGRAVIR/ EMTRICITABINE/TENOFOVIR [Suspect]
     Active Substance: BICTEGRAVIR SODIUM\EMTRICITABINE\TENOFOVIR ALAFENAMIDE FUMARATE
     Indication: HIV INFECTION
     Dates: start: 20180801, end: 20180911

REACTIONS (6)
  - Abnormal faeces [None]
  - Headache [None]
  - Dry eye [None]
  - Dysgeusia [None]
  - Nightmare [None]
  - Paranoia [None]

NARRATIVE: CASE EVENT DATE: 20180911
